FAERS Safety Report 9987789 (Version 4)
Quarter: 2014Q2

REPORT INFORMATION
  Report Type: Spontaneous
  Country: US (occurrence: US)
  Receive Date: 20140307
  Receipt Date: 20140602
  Transmission Date: 20141212
  Serious: No
  Sender: FDA-Public Use
  Company Number: US-AMGEN-USASP2014011272

PATIENT
  Age: 41 Year
  Sex: Male
  Weight: 58.96 kg

DRUGS (1)
  1. ENBREL [Suspect]
     Indication: PSORIASIS
     Dosage: 50 MG, 2 TIMES/WK
     Route: 065
     Dates: start: 20140210

REACTIONS (8)
  - Skin plaque [Recovered/Resolved]
  - Headache [Recovered/Resolved]
  - Erythema [Recovered/Resolved]
  - Anxiety [Unknown]
  - Skin discolouration [Not Recovered/Not Resolved]
  - Drug ineffective [Recovered/Resolved]
  - Psoriasis [Recovered/Resolved]
  - Paraesthesia [Recovered/Resolved]
